FAERS Safety Report 17258478 (Version 2)
Quarter: 2020Q1

REPORT INFORMATION
  Report Type: Spontaneous
  Country: JP (occurrence: JP)
  Receive Date: 20200110
  Receipt Date: 20200123
  Transmission Date: 20200409
  Serious: Yes (Hospitalization, Other)
  Sender: FDA-Public Use
  Company Number: JP-009507513-2001JPN000803J

PATIENT
  Age: 82 Year
  Sex: Male

DRUGS (1)
  1. KEYTRUDA [Suspect]
     Active Substance: PEMBROLIZUMAB
     Indication: NON-SMALL CELL LUNG CANCER
     Dosage: 200 MILLIGRAM, Q3W
     Route: 041
     Dates: start: 20190726, end: 201912

REACTIONS (2)
  - Hypothyroidism [Not Recovered/Not Resolved]
  - Colitis [Unknown]

NARRATIVE: CASE EVENT DATE: 201912
